FAERS Safety Report 8404082-1 (Version None)
Quarter: 2012Q2

REPORT INFORMATION
  Report Type: 
  Country: None (occurrence: None)
  Receive Date: 20120601
  Receipt Date: 20120529
  Transmission Date: 20120825
  Serious: Yes (Death)
  Sender: FDA-Public Use
  Company Number: ZW-ABBOTT-12P-190-0940414-00

PATIENT
  Age: 40 Year
  Sex: Male

DRUGS (4)
  1. ABACAVIR [Concomitant]
     Indication: HIV INFECTION
     Dates: start: 20101005, end: 20120409
  2. DIDANOSINE [Concomitant]
     Indication: HIV INFECTION
     Dates: start: 20101005, end: 20120409
  3. LOPINAVIR/RITONAVIR [Suspect]
     Indication: HIV INFECTION
     Route: 048
     Dates: start: 20101005, end: 20120409
  4. COTRIM [Concomitant]
     Indication: PRODUCT USED FOR UNKNOWN INDICATION
     Dates: start: 20090801, end: 20120409

REACTIONS (2)
  - VOMITING [None]
  - ABDOMINAL PAIN [None]
